FAERS Safety Report 21015010 (Version 1)
Quarter: 2022Q2

REPORT INFORMATION
  Report Type: Spontaneous
  Country: JP (occurrence: JP)
  Receive Date: 20220628
  Receipt Date: 20220628
  Transmission Date: 20220721
  Serious: Yes (Other)
  Sender: FDA-Public Use
  Company Number: JP-CHUGAI-2022023570

PATIENT
  Age: 7 Decade
  Sex: Female

DRUGS (2)
  1. TECENTRIQ [Suspect]
     Active Substance: ATEZOLIZUMAB
     Indication: Triple negative breast cancer
     Route: 041
  2. ABRAXANE [PACLITAXEL NANOPARTICLE ALBUMIN-BOUND] [Concomitant]
     Indication: Triple negative breast cancer
     Route: 041

REACTIONS (3)
  - Metastases to central nervous system [Unknown]
  - Dementia [Unknown]
  - Headache [Not Recovered/Not Resolved]
